FAERS Safety Report 4506799-8 (Version None)
Quarter: 2004Q4

REPORT INFORMATION
  Report Type: 
  Country: None (occurrence: None)
  Receive Date: 20041122
  Receipt Date: 20041108
  Transmission Date: 20050328
  Serious: Yes (Other)
  Sender: FDA-Public Use
  Company Number: US-GLAXOSMITHKLINE-A0533114A

PATIENT
  Age: 61 Year
  Sex: Male

DRUGS (7)
  1. COREG [Suspect]
     Route: 048
     Dates: start: 20040106
  2. PLAVIX [Concomitant]
  3. NIASPAN [Concomitant]
  4. PEPCID AC [Concomitant]
  5. ZOCOR [Concomitant]
  6. CLARINEX [Concomitant]
  7. ASPIRIN [Concomitant]

REACTIONS (5)
  - DIPLOPIA [None]
  - PHOTOPHOBIA [None]
  - VISION BLURRED [None]
  - VISUAL ACUITY REDUCED [None]
  - VISUAL DISTURBANCE [None]
